APPROVED DRUG PRODUCT: VASOCON
Active Ingredient: NAPHAZOLINE HYDROCHLORIDE
Strength: 0.1%
Dosage Form/Route: SOLUTION/DROPS;OPHTHALMIC
Application: A080235 | Product #002
Applicant: NOVARTIS PHARMACEUTICALS CORP
Approved: Mar 24, 1983 | RLD: No | RS: No | Type: DISCN